FAERS Safety Report 14476564 (Version 4)
Quarter: 2019Q2

REPORT INFORMATION
  Report Type: Spontaneous
  Country: US (occurrence: US)
  Receive Date: 20180201
  Receipt Date: 20190611
  Transmission Date: 20190711
  Serious: Yes (Hospitalization, Other)
  Sender: FDA-Public Use
  Company Number: US-SA-2017SA226311

PATIENT
  Age: 58 Year
  Sex: Female

DRUGS (3)
  1. PRALUENT [Suspect]
     Active Substance: ALIROCUMAB
     Dosage: UNK
     Route: 058
     Dates: start: 201802
  2. PRALUENT [Suspect]
     Active Substance: ALIROCUMAB
     Dosage: 75 MG, QOW
     Route: 058
     Dates: start: 20180524
  3. PRALUENT [Suspect]
     Active Substance: ALIROCUMAB
     Indication: HYPERLIPIDAEMIA
     Dosage: UNK UNK,UNK
     Route: 058

REACTIONS (3)
  - Thrombosis [Unknown]
  - Injection site pruritus [Unknown]
  - Injection site pain [Unknown]

NARRATIVE: CASE EVENT DATE: 20190204
